FAERS Safety Report 7285114-3 (Version None)
Quarter: 2011Q1

REPORT INFORMATION
  Report Type: 
  Country: None (occurrence: None)
  Receive Date: 20110210
  Receipt Date: 20110131
  Transmission Date: 20110831
  Serious: Yes (Other)
  Sender: FDA-Public Use
  Company Number: PHHY2010US56793

PATIENT
  Sex: Female
  Weight: 87.982 kg

DRUGS (7)
  1. LEXAPRO [Concomitant]
     Route: 048
  2. EXJADE [Suspect]
     Indication: MYELODYSPLASTIC SYNDROME
     Dosage: 500 MG, QD
     Route: 048
     Dates: start: 20070511
  3. EXJADE [Suspect]
     Indication: IRON OVERLOAD
  4. NEXIUM [Concomitant]
     Route: 048
  5. VIDAZA [Suspect]
     Indication: MYELODYSPLASTIC SYNDROME
     Dosage: 112MG IV DAILY X 5D
     Route: 042
  6. SINGULAIR [Concomitant]
     Route: 048
  7. METFORMIN [Concomitant]
     Route: 048

REACTIONS (2)
  - ULCERATIVE KERATITIS [None]
  - EYE DISORDER [None]
